FAERS Safety Report 12651817 (Version 1)
Quarter: 2016Q3

REPORT INFORMATION
  Report Type: Spontaneous
  Country: US (occurrence: US)
  Receive Date: 20160815
  Receipt Date: 20160815
  Transmission Date: 20161109
  Serious: No
  Sender: FDA-Public Use
  Company Number: US-GALDERMA-US16003352

PATIENT
  Age: 15 Year
  Sex: Male

DRUGS (2)
  1. UNKNOWN MOISTURIZER [Concomitant]
     Indication: DRY SKIN
     Route: 061
  2. ADAPALENE GEL, 0.3% [Suspect]
     Active Substance: ADAPALENE
     Dosage: 0.3%
     Route: 061

REACTIONS (1)
  - Dry skin [Unknown]
